FAERS Safety Report 6165914-3 (Version None)
Quarter: 2009Q2

REPORT INFORMATION
  Report Type: 
  Country: None (occurrence: None)
  Receive Date: 20090422
  Receipt Date: 20090410
  Transmission Date: 20091009
  Serious: Yes (Life-Threatening, Hospitalization, Other)
  Sender: FDA-Public Use
  Company Number: 09US001151

PATIENT
  Age: 74 Year
  Sex: Female
  Weight: 34 kg

DRUGS (1)
  1. STAVZOR (VALPROIC ACID) DELAYED RELEASE CAPSULES [Suspect]
     Indication: CONVULSION PROPHYLAXIS
     Dosage: 875 MG, TID, ORAL
     Route: 048
     Dates: start: 20090101

REACTIONS (7)
  - DEPRESSION [None]
  - HIP FRACTURE [None]
  - HYPOALBUMINAEMIA [None]
  - MAJOR DEPRESSION [None]
  - SELF INJURIOUS BEHAVIOUR [None]
  - SUICIDE ATTEMPT [None]
  - WEIGHT DECREASED [None]
